FAERS Safety Report 6650347-3 (Version None)
Quarter: 2010Q1

REPORT INFORMATION
  Report Type: 
  Country: None (occurrence: None)
  Receive Date: 20100325
  Receipt Date: 20100323
  Transmission Date: 20100710
  Serious: Yes (Death, Other)
  Sender: FDA-Public Use
  Company Number: PHHY2010GB14690

PATIENT
  Sex: Male

DRUGS (3)
  1. CLOZARIL [Suspect]
     Indication: SCHIZOPHRENIA
     Dosage: UNK
     Dates: start: 20000710, end: 20100215
  2. PAROXETINE HCL [Concomitant]
     Indication: DEPRESSION
     Dosage: 30 MG
     Route: 048
     Dates: start: 20000101, end: 20100215
  3. PAROXETINE HCL [Concomitant]
     Indication: ANXIETY

REACTIONS (3)
  - ANTIPSYCHOTIC DRUG LEVEL INCREASED [None]
  - COMPLETED SUICIDE [None]
  - MENTAL DISORDER [None]
